FAERS Safety Report 15124318 (Version 1)
Quarter: 2018Q3

REPORT INFORMATION
  Report Type: Spontaneous
  Country: AU (occurrence: AU)
  Receive Date: 20180710
  Receipt Date: 20180710
  Transmission Date: 20181010
  Serious: Yes (Other)
  Sender: FDA-Public Use
  Company Number: AU-TEVA-2018-AU-923383

PATIENT
  Sex: Female

DRUGS (2)
  1. FENTAYL [Suspect]
     Active Substance: FENTANYL
     Route: 065
  2. MARCAINE [Suspect]
     Active Substance: BUPIVACAINE HYDROCHLORIDE
     Route: 065

REACTIONS (3)
  - Meningitis bacterial [Unknown]
  - Seizure [Unknown]
  - Urinary incontinence [Unknown]
